FAERS Safety Report 10570937 (Version 3)
Quarter: 2014Q4

REPORT INFORMATION
  Report Type: Spontaneous
  Country: DE (occurrence: DE)
  Receive Date: 20141107
  Receipt Date: 20141216
  Transmission Date: 20150529
  Serious: Yes (Other)
  Sender: FDA-Public Use
  Company Number: DE-UCBSA-2014012405

PATIENT
  Age: 12 Year
  Sex: Female
  Weight: 68 kg

DRUGS (4)
  1. CHARIVA [Concomitant]
     Indication: CONTRACEPTION
     Dosage: 1 DF, ONCE DAILY (QD)
     Route: 048
     Dates: start: 201401, end: 201410
  2. LEVETIRACETAM UCB [Suspect]
     Active Substance: LEVETIRACETAM
     Indication: EPILEPSY
     Dosage: 2000 MG, 2X/DAY (BID)
     Route: 048
     Dates: start: 201308, end: 2014
  3. LEVETIRACETAM UCB [Suspect]
     Active Substance: LEVETIRACETAM
     Dosage: 1000 MG  DAILY
     Route: 048
     Dates: start: 201409, end: 2014
  4. LEVETIRACETAM UCB [Suspect]
     Active Substance: LEVETIRACETAM
     Dosage: 500 MG DAILY
     Route: 048
     Dates: start: 2014, end: 20141110

REACTIONS (2)
  - Rhinitis [Recovered/Resolved]
  - Neurodermatitis [Recovered/Resolved]

NARRATIVE: CASE EVENT DATE: 201308
